FAERS Safety Report 13216493 (Version 2)
Quarter: 2017Q1

REPORT INFORMATION
  Report Type: Spontaneous
  Country: US (occurrence: US)
  Receive Date: 20170210
  Receipt Date: 20170303
  Transmission Date: 20170428
  Serious: No
  Sender: FDA-Public Use
  Company Number: US-ASTRAZENECA-2017SE11863

PATIENT
  Sex: Female

DRUGS (1)
  1. PULMICORT FLEXHALER [Suspect]
     Active Substance: BUDESONIDE
     Dosage: 90 MICROGRAMS, FREQUENCY UNKNOWN
     Route: 055

REACTIONS (2)
  - Wheezing [Unknown]
  - Device issue [Unknown]
